FAERS Safety Report 9559153 (Version 2)
Quarter: 2016Q3

REPORT INFORMATION
  Report Type: Spontaneous
  Country: TW (occurrence: TW)
  Receive Date: 20130927
  Receipt Date: 20160713
  Transmission Date: 20161109
  Serious: Yes (Hospitalization, Other)
  Sender: FDA-Public Use
  Company Number: TW-BRISTOL-MYERS SQUIBB COMPANY-19401728

PATIENT
  Age: 67 Year
  Sex: Female

DRUGS (2)
  1. MOXIFLOXACIN HCL [Interacting]
     Active Substance: MOXIFLOXACIN
     Indication: PNEUMONIA
     Dosage: 400 MG, QD
     Route: 065
  2. WARFARIN SODIUM. [Suspect]
     Active Substance: WARFARIN SODIUM
     Indication: ANTICOAGULANT THERAPY
     Dosage: 2.5 MG, QD
     Route: 065

REACTIONS (3)
  - Drug interaction [Recovering/Resolving]
  - Peritoneal haemorrhage [Recovering/Resolving]
  - Abdominal wall haematoma [Recovering/Resolving]
